FAERS Safety Report 10356294 (Version 1)
Quarter: 2014Q3

REPORT INFORMATION
  Report Type: Other
  Country: US (occurrence: US)
  Receive Date: 20140801
  Receipt Date: 20140801
  Transmission Date: 20150326
  Serious: Yes (Death, Hospitalization)
  Sender: FDA-Public Use
  Company Number: US-LUPIN PHARMACEUTICALS INC.-2014-01374

PATIENT
  Age: 40 Year
  Sex: Male

DRUGS (3)
  1. ROSIGLITAZONE/METFORMIN [Concomitant]
     Indication: DIABETES MELLITUS
     Route: 065
  2. TOPIRAMATE. [Suspect]
     Active Substance: TOPIRAMATE
     Indication: CONVULSION
     Route: 065
  3. DIVALPROEX SODIUM. [Concomitant]
     Active Substance: DIVALPROEX SODIUM
     Indication: CONVULSION
     Route: 065

REACTIONS (1)
  - Heat stroke [Fatal]
